FAERS Safety Report 4915978-7 (Version None)
Quarter: 2006Q1

REPORT INFORMATION
  Report Type: 
  Country: None (occurrence: None)
  Receive Date: 20060214
  Receipt Date: 20060127
  Transmission Date: 20060701
  Serious: Yes (Other)
  Sender: FDA-Public Use
  Company Number: US200601004406

PATIENT
  Age: 9 Year
  Sex: Male
  Weight: 28.8 kg

DRUGS (1)
  1. STRATTERA [Suspect]
     Indication: ANXIETY
     Dosage: 10 MG, ORAL
     Route: 048
     Dates: start: 20060119, end: 20060120

REACTIONS (5)
  - DYSPNOEA [None]
  - HYPERSENSITIVITY [None]
  - OXYGEN SATURATION DECREASED [None]
  - PHARMACEUTICAL PRODUCT COMPLAINT [None]
  - VOMITING [None]
